FAERS Safety Report 13681807 (Version 1)
Quarter: 2017Q2

REPORT INFORMATION
  Report Type: Spontaneous
  Country: US (occurrence: US)
  Receive Date: 20170622
  Receipt Date: 20170622
  Transmission Date: 20170830
  Serious: Yes (Other)
  Sender: FDA-Public Use
  Company Number: None

PATIENT
  Age: 22 Year
  Sex: Female
  Weight: 47.92 kg

DRUGS (5)
  1. CRISABOROLE STEROID CREAM [Concomitant]
  2. HYDROXYZINE HCL [Concomitant]
     Active Substance: HYDROXYZINE HYDROCHLORIDE
  3. TACROLIMUS. [Concomitant]
     Active Substance: TACROLIMUS
  4. EVEN BETTER FOUNDATION SPF 15 [Suspect]
     Active Substance: OCTINOXATE\TITANIUM DIOXIDE\ZINC OXIDE
     Indication: PRODUCT USED FOR UNKNOWN INDICATION
     Dosage: QUANTITY:50 ML;OTHER FREQUENCY:MAKEUP;?
     Route: 061
     Dates: start: 20161125, end: 20170605
  5. CLINIQUE EVEN BETTER SKIN TONE CORRECTING BROAD SPECTRUM SPF 20 [Suspect]
     Active Substance: AVOBENZONE\OCTISALATE\OCTOCRYLENE

REACTIONS (5)
  - Pain [None]
  - Scar [None]
  - Blister [None]
  - Rash [None]
  - Drug hypersensitivity [None]

NARRATIVE: CASE EVENT DATE: 20161125
